FAERS Safety Report 9946954 (Version 1)
Quarter: 2014Q1

REPORT INFORMATION
  Report Type: Report from Study
  Country: US (occurrence: US)
  Receive Date: 20140303
  Receipt Date: 20140303
  Transmission Date: 20141002
  Serious: No
  Sender: FDA-Public Use
  Company Number: US-ABBVIE-13P-163-1058508-00

PATIENT
  Sex: Male
  Weight: 74.91 kg

DRUGS (3)
  1. HUMIRA [Suspect]
     Indication: OSTEOARTHRITIS
     Route: 058
     Dates: start: 20130211
  2. CELEXA [Concomitant]
     Indication: DEPRESSION
  3. TRAMADOL [Concomitant]
     Indication: PAIN

REACTIONS (1)
  - Off label use [Not Recovered/Not Resolved]
